FAERS Safety Report 6308070-0 (Version None)
Quarter: 2009Q3

REPORT INFORMATION
  Report Type: 
  Country: None (occurrence: None)
  Receive Date: 20090813
  Receipt Date: 20090805
  Transmission Date: 20100115
  Serious: Yes (Hospitalization)
  Sender: FDA-Public Use
  Company Number: B0588207A

PATIENT
  Sex: Female

DRUGS (1)
  1. SERETIDE [Suspect]
     Route: 055
     Dates: start: 20060101, end: 20080301

REACTIONS (1)
  - ADRENAL INSUFFICIENCY [None]
